FAERS Safety Report 6070807-6 (Version None)
Quarter: 2009Q1

REPORT INFORMATION
  Report Type: 
  Country: None (occurrence: None)
  Receive Date: 20090209
  Receipt Date: 20080715
  Transmission Date: 20090719
  Serious: No
  Sender: FDA-Public Use
  Company Number: A0737711A

PATIENT
  Sex: Female

DRUGS (2)
  1. PAXIL [Suspect]
     Dosage: 20MG PER DAY
     Route: 048
     Dates: start: 20010101
  2. NO CONCURRENT MEDICATION [Concomitant]

REACTIONS (5)
  - AGITATION [None]
  - DRUG INEFFECTIVE [None]
  - DRY MOUTH [None]
  - ILL-DEFINED DISORDER [None]
  - INCREASED TENDENCY TO BRUISE [None]
